FAERS Safety Report 5530767-0 (Version None)
Quarter: 2007Q4

REPORT INFORMATION
  Report Type: 
  Country: None (occurrence: None)
  Receive Date: 20071128
  Receipt Date: 20071128
  Transmission Date: 20080405
  Serious: Yes (Hospitalization)
  Sender: FDA-Public Use
  Company Number: None

PATIENT
  Sex: Male
  Weight: 95 kg

DRUGS (1)
  1. TEMOZOLOMIDE [Suspect]
     Dosage: 3300 MG

REACTIONS (4)
  - DEHYDRATION [None]
  - HIATUS HERNIA [None]
  - NAUSEA [None]
  - VOMITING [None]
